FAERS Safety Report 10204652 (Version 1)
Quarter: 2014Q2

REPORT INFORMATION
  Report Type: Spontaneous
  Country: US (occurrence: None)
  Receive Date: 20140527
  Receipt Date: 20140527
  Transmission Date: 20141212
  Serious: Yes (Hospitalization, Other)
  Sender: FDA-Public Use
  Company Number: 2014-US-006150

PATIENT
  Age: 81 Year
  Sex: Female
  Weight: 53.5 kg

DRUGS (3)
  1. XYREM [Suspect]
     Indication: NARCOLEPSY
     Route: 048
     Dates: start: 200210
  2. XYREM [Suspect]
     Indication: CATAPLEXY
     Route: 048
     Dates: start: 200210
  3. KEFLEX (CEFALEXIN) [Concomitant]

REACTIONS (1)
  - Knee arthroplasty [None]
